FAERS Safety Report 20771777 (Version 1)
Quarter: 2022Q2

REPORT INFORMATION
  Report Type: Spontaneous
  Country: US (occurrence: US)
  Receive Date: 20220430
  Receipt Date: 20220430
  Transmission Date: 20220720
  Serious: Yes (Other)
  Sender: FDA-Public Use
  Company Number: US-drreddys-LIT/USA/22/0149516

PATIENT
  Sex: Male

DRUGS (8)
  1. SIROLIMUS [Suspect]
     Active Substance: SIROLIMUS
     Indication: Prophylaxis against graft versus host disease
     Dosage: ON DAY +4
  2. SIROLIMUS [Suspect]
     Active Substance: SIROLIMUS
     Indication: Prophylaxis
  3. ALEMTUZUMAB [Suspect]
     Active Substance: ALEMTUZUMAB
     Indication: Prophylaxis against transplant rejection
     Dosage: DIVIDED OVER DAYS -7 TO -3, TOTAL BODY IRRADIATION ON DAYS -2 AND -1
  4. ALEMTUZUMAB [Suspect]
     Active Substance: ALEMTUZUMAB
     Indication: Infection prophylaxis
  5. CYCLOPHOSPHAMIDE [Suspect]
     Active Substance: CYCLOPHOSPHAMIDE
     Indication: Infection prophylaxis
     Dosage: ON DAYS -21 TO -8
     Route: 048
  6. CYCLOPHOSPHAMIDE [Suspect]
     Active Substance: CYCLOPHOSPHAMIDE
     Indication: Prophylaxis against transplant rejection
     Dosage: POST-TRANSPLANT ON DAY +3
  7. PENTOSTATIN [Suspect]
     Active Substance: PENTOSTATIN
     Indication: Infection prophylaxis
     Dosage: ON DAYS -21, -17, 13, AND -9
  8. PENTOSTATIN [Suspect]
     Active Substance: PENTOSTATIN
     Indication: Prophylaxis against transplant rejection

REACTIONS (2)
  - Rhabdomyolysis [Unknown]
  - Liver injury [Unknown]
